FAERS Safety Report 5872544-7 (Version None)
Quarter: 2008Q3

REPORT INFORMATION
  Report Type: 
  Country: None (occurrence: None)
  Receive Date: 20080902
  Receipt Date: 20080822
  Transmission Date: 20090109
  Serious: Yes (Death)
  Sender: FDA-Public Use
  Company Number: B0534275A

PATIENT
  Age: 54 Year
  Sex: Male

DRUGS (6)
  1. MELPHALAN (FORMULATION UNKNOWN) (GENERIC) (MELPHALAN) [Suspect]
     Indication: MULTIPLE MYELOMA
     Dosage: 200 MG/M2/
  2. VINCRISTINE [Concomitant]
  3. CYCLOPHOSPHAMIDE [Concomitant]
  4. PREDNISONE TAB [Concomitant]
  5. CARMUSTINE [Concomitant]
  6. DOXORUBICIN HYDROCHLORIDE [Concomitant]

REACTIONS (1)
  - BREAST CANCER MALE [None]
